FAERS Safety Report 14809097 (Version 1)
Quarter: 2018Q2

REPORT INFORMATION
  Report Type: Spontaneous
  Country: JP (occurrence: JP)
  Receive Date: 20180425
  Receipt Date: 20180425
  Transmission Date: 20180711
  Serious: Yes (Death)
  Sender: FDA-Public Use
  Company Number: JP-ALLERGAN-1822942US

PATIENT
  Age: 56 Day
  Weight: 1.78 kg

DRUGS (1)
  1. URSODEOXYCHOLIC ACID UNK [Suspect]
     Active Substance: URSODIOL
     Indication: CHOLESTASIS

REACTIONS (3)
  - Drug ineffective [Unknown]
  - Cholestasis [Fatal]
  - Off label use [Unknown]
